FAERS Safety Report 15792307 (Version 5)
Quarter: 2019Q1

REPORT INFORMATION
  Report Type: Report from Study
  Country: ES (occurrence: ES)
  Receive Date: 20190107
  Receipt Date: 20190320
  Transmission Date: 20190417
  Serious: Yes (Hospitalization, Other)
  Sender: FDA-Public Use
  Company Number: ES-ROCHE-2238100

PATIENT
  Age: 58 Year
  Sex: Female
  Weight: 58 kg

DRUGS (21)
  1. OCRELIZUMAB. [Suspect]
     Active Substance: OCRELIZUMAB
     Dosage: SUBSEQUENT DOSES RECEIVED ON 10/MAY/2017, 18/OCT/2017, 11/APR/2018, 26/SEP/2018?MOST RECENT DOSE PRI
     Route: 042
     Dates: start: 20161116
  2. DEPRAX (SPAIN) [Concomitant]
     Active Substance: TRAZODONE HYDROCHLORIDE
     Dosage: 1 AND HALF TABLET EVERY 24 HOURS
     Route: 065
  3. NOLOTIL [Concomitant]
     Route: 065
  4. PARACETAMOL [Concomitant]
     Active Substance: ACETAMINOPHEN
     Dosage: SUBSEQUENT DOSES OF BLINDED OCRELIZUMAB RECEIVED ON 26/MAY/2011, 27/OCT/2011, 10/NOV/2011, 12/APR/20
     Route: 065
     Dates: start: 20110512
  5. METHYLPREDNISOLONE. [Concomitant]
     Active Substance: METHYLPREDNISOLONE
     Dosage: SUBSEQUENT DOSES OF BLINDED OCRELIZUMAB RECEIVED ON 26/MAY/2011, 27/OCT/2011, 10/NOV/2011, 12/APR/20
     Route: 065
     Dates: start: 20110512
  6. OCRELIZUMAB. [Suspect]
     Active Substance: OCRELIZUMAB
     Indication: PRIMARY PROGRESSIVE MULTIPLE SCLEROSIS
     Dosage: SUBSEQUENT DOSES RECEIVED ON 11/JAN/2016, 01/JUN/2016, 15/JUN/2016?TWO IV INFUSIONS OF OCRELIZUMAB 3
     Route: 042
     Dates: start: 20151221
  7. AMANTADINE. [Concomitant]
     Active Substance: AMANTADINE HYDROCHLORIDE
     Indication: FATIGUE
     Route: 065
     Dates: start: 20051018
  8. DOLOCATIL [Concomitant]
     Active Substance: ACETAMINOPHEN
     Route: 065
  9. PRISTIQ EXTENDED-RELEASE [Concomitant]
     Active Substance: DESVENLAFAXINE SUCCINATE
     Route: 065
  10. TRADONAL [Concomitant]
     Active Substance: TRAMADOL HYDROCHLORIDE
     Dosage: 0-0-1
     Route: 065
  11. BACLOFEN. [Concomitant]
     Active Substance: BACLOFEN
     Indication: MUSCLE SPASTICITY
     Route: 065
  12. CITALOPRAM [Concomitant]
     Active Substance: CITALOPRAM HYDROBROMIDE
     Indication: DEPRESSION
     Route: 065
     Dates: start: 20060214
  13. TIZANIDINE. [Concomitant]
     Active Substance: TIZANIDINE
     Indication: MUSCLE SPASTICITY
     Route: 065
     Dates: start: 20051018
  14. VESICARE [Concomitant]
     Active Substance: SOLIFENACIN SUCCINATE
     Indication: URINARY INCONTINENCE
     Route: 065
     Dates: start: 20070703
  15. OCRELIZUMAB. [Suspect]
     Active Substance: OCRELIZUMAB
     Indication: PRIMARY PROGRESSIVE MULTIPLE SCLEROSIS
     Dosage: SUBSEQUENT DOSES OF BLINDED OCRELIZUMAB RECEIVED ON 12/MAY/2011, 26/MAY/2011, 27/OCT/2011, 10/NOV/20
     Route: 042
     Dates: start: 20110414
  16. DIAZEPAM. [Concomitant]
     Active Substance: DIAZEPAM
     Indication: DEPRESSION
     Route: 065
  17. LIORESAL [Concomitant]
     Active Substance: BACLOFEN
     Route: 065
  18. GABAPENTINA [Concomitant]
     Active Substance: GABAPENTIN
     Indication: NEURALGIA
     Dosage: 2 AND HALF TABLET
     Route: 065
     Dates: start: 20081022
  19. IBUPROFENO [Concomitant]
     Active Substance: IBUPROFEN
     Route: 065
  20. DEXCHLORPHENIRAMINE [Concomitant]
     Active Substance: DEXCHLORPHENIRAMINE
     Route: 065
     Dates: start: 20180411
  21. DIPHENHYDRAMINE. [Concomitant]
     Active Substance: DIPHENHYDRAMINE
     Dosage: SUBSEQUENT DOSES OF BLINDED OCRELIZUMAB RECEIVED ON 27/OCT/2011, 10/NOV/2011, 12/APR/2012, 26/APR/20
     Route: 065
     Dates: start: 20110526

REACTIONS (2)
  - Septic shock [Recovered/Resolved]
  - Volvulus [Recovered/Resolved]

NARRATIVE: CASE EVENT DATE: 20181216
